FAERS Safety Report 14720169 (Version 2)
Quarter: 2018Q3

REPORT INFORMATION
  Report Type: Spontaneous
  Country: US (occurrence: US)
  Receive Date: 20180405
  Receipt Date: 20180706
  Transmission Date: 20181010
  Serious: Yes (Other)
  Sender: FDA-Public Use
  Company Number: US-ALLERGAN-1814087US

PATIENT
  Age: 14 Year
  Sex: Male
  Weight: 91.61 kg

DRUGS (3)
  1. VRAYLAR [Suspect]
     Active Substance: CARIPRAZINE
     Indication: PSYCHOTIC DISORDER
     Dosage: 1.5 G, QD
     Route: 048
     Dates: start: 20171130
  2. VRAYLAR [Suspect]
     Active Substance: CARIPRAZINE
     Dosage: 3 G, QD
     Route: 048
  3. VRAYLAR [Suspect]
     Active Substance: CARIPRAZINE
     Dosage: 3 G, QD
     Route: 048

REACTIONS (2)
  - Seizure [Recovered/Resolved]
  - Off label use [Unknown]
